FAERS Safety Report 9928464 (Version 1)
Quarter: 2014Q1

REPORT INFORMATION
  Report Type: Spontaneous
  Country: US (occurrence: None)
  Receive Date: 20140226
  Receipt Date: 20140226
  Transmission Date: 20141002
  Serious: Yes (Life-Threatening, Hospitalization)
  Sender: FDA-Public Use
  Company Number: None

PATIENT
  Age: 80 Year
  Sex: Male
  Weight: 88.5 kg

DRUGS (1)
  1. CARFILZOMIB [Suspect]
     Indication: PLASMA CELL MYELOMA
     Dates: start: 20140218

REACTIONS (3)
  - Renal failure acute [None]
  - Dialysis [None]
  - Thrombotic microangiopathy [None]
